FAERS Safety Report 8325498-8 (Version None)
Quarter: 2012Q2

REPORT INFORMATION
  Report Type: 
  Country: None (occurrence: None)
  Receive Date: 20120501
  Receipt Date: 20120426
  Transmission Date: 20120825
  Serious: Yes (Death, Other)
  Sender: FDA-Public Use
  Company Number: US-JNJFOC-20120413212

PATIENT
  Sex: Male

DRUGS (1)
  1. FENTANYL-100 [Suspect]
     Indication: ACCIDENTAL EXPOSURE
     Route: 062

REACTIONS (3)
  - DEATH [None]
  - ACCIDENTAL DRUG INTAKE BY CHILD [None]
  - WRONG TECHNIQUE IN DRUG USAGE PROCESS [None]
